FAERS Safety Report 20961784 (Version 2)
Quarter: 2025Q4

REPORT INFORMATION
  Report Type: Spontaneous
  Country: US (occurrence: US)
  Receive Date: 20220615
  Receipt Date: 20251128
  Transmission Date: 20260118
  Serious: Yes (Hospitalization)
  Sender: JAZZ
  Company Number: US-JAZZ-2022-US-019472

PATIENT
  Sex: Female
  Weight: 12.245 kg

DRUGS (2)
  1. EPIDIOLEX [Suspect]
     Active Substance: CANNABIDIOL
     Indication: Lennox-Gastaut syndrome
     Dosage: 1 MILLILITER, BID
     Dates: start: 20220201
  2. EPIDIOLEX [Suspect]
     Active Substance: CANNABIDIOL
     Dosage: 1.5 MILLILITER, BID

REACTIONS (1)
  - Hospitalisation [Unknown]
